FAERS Safety Report 7717205-4 (Version None)
Quarter: 2011Q3

REPORT INFORMATION
  Report Type: 
  Country: None (occurrence: None)
  Receive Date: 20110818
  Receipt Date: 20110713
  Transmission Date: 20111222
  Serious: No
  Sender: FDA-Public Use
  Company Number: 1000022153

PATIENT
  Sex: Female

DRUGS (1)
  1. VIIBRYD [Suspect]
     Dosage: ORAL
     Route: 048
     Dates: start: 20110706

REACTIONS (4)
  - SOMNOLENCE [None]
  - DIZZINESS [None]
  - DIARRHOEA [None]
  - VOMITING [None]
